FAERS Safety Report 5873492-9 (Version None)
Quarter: 2008Q3

REPORT INFORMATION
  Report Type: 
  Country: None (occurrence: None)
  Receive Date: 20080908
  Receipt Date: 20080807
  Transmission Date: 20090109
  Serious: No
  Sender: FDA-Public Use
  Company Number: US-BAYER-US-2006-002428

PATIENT
  Age: 51 Year
  Sex: Female
  Weight: 99 kg

DRUGS (3)
  1. CLIMARA [Suspect]
     Indication: MENOPAUSAL SYMPTOMS
     Route: 062
  2. CLIMARA [Suspect]
     Route: 062
  3. CLIMARA [Suspect]
     Route: 062
     Dates: start: 20051220

REACTIONS (4)
  - APPLICATION SITE DERMATITIS [None]
  - APPLICATION SITE ERYTHEMA [None]
  - APPLICATION SITE IRRITATION [None]
  - APPLICATION SITE PRURITUS [None]
